FAERS Safety Report 20573279 (Version 1)
Quarter: 2022Q1

REPORT INFORMATION
  Report Type: Report from Study
  Country: JP (occurrence: JP)
  Receive Date: 20220309
  Receipt Date: 20220309
  Transmission Date: 20220423
  Serious: Yes (Death)
  Sender: FDA-Public Use
  Company Number: JP-CHUGAI-2022007671

PATIENT
  Age: 58 Year
  Sex: Male

DRUGS (3)
  1. BEVACIZUMAB [Suspect]
     Active Substance: BEVACIZUMAB
     Indication: Colorectal cancer
     Dosage: MOST RECENT DOSE: 13/FEB/2019
     Route: 041
     Dates: start: 20170526
  2. OXALIPLATIN [Concomitant]
     Active Substance: OXALIPLATIN
     Indication: Colorectal adenocarcinoma
     Dosage: UNK
     Route: 041
     Dates: start: 20170526, end: 20190213
  3. GIMERACIL\OTERACIL\TEGAFUR [Concomitant]
     Active Substance: GIMERACIL\OTERACIL\TEGAFUR
     Indication: Colorectal adenocarcinoma
     Dosage: UNK
     Route: 048
     Dates: start: 20170526, end: 20190213

REACTIONS (1)
  - Death [Fatal]

NARRATIVE: CASE EVENT DATE: 20210827
